FAERS Safety Report 8206097-5 (Version None)
Quarter: 2012Q1

REPORT INFORMATION
  Report Type: 
  Country: None (occurrence: None)
  Receive Date: 20120313
  Receipt Date: 20120227
  Transmission Date: 20120608
  Serious: Yes (Other)
  Sender: FDA-Public Use
  Company Number: CHPA2012US004015

PATIENT
  Age: 57 Year
  Sex: Female

DRUGS (11)
  1. CYMBALTA [Concomitant]
     Dosage: 60MG QAM AND 30MG QPM
  2. OMEPRAZOLE [Concomitant]
     Dosage: 20 MG, QD
  3. EXCEDRIN EXTRA STRENGTH TABLETS [Suspect]
     Indication: ULCER
     Dosage: 3 DF, QD
     Route: 048
  4. EXCEDRIN EXTRA STRENGTH TABLETS [Suspect]
     Dosage: UNK , UNK
  5. SERTRALINE HYDROCHLORIDE [Concomitant]
     Dosage: 100 MG, QD
  6. LYRICA [Concomitant]
     Dosage: 225 MG, QD
  7. FLURBIPROFEN [Concomitant]
     Dosage: 100 MG, TID
  8. VITAMINS NOS [Concomitant]
  9. TRAZODONE HCL [Concomitant]
     Dosage: 100 MG, EVERY NIGHT
  10. LORAZEPAM [Concomitant]
     Dosage: 1 MG, UNK
  11. CINNAMON [Concomitant]
     Indication: HYPERTENSION
     Dosage: UNK, TID

REACTIONS (3)
  - OFF LABEL USE [None]
  - GASTRIC ULCER [None]
  - INCORRECT DRUG ADMINISTRATION DURATION [None]
